FAERS Safety Report 7341005-0 (Version None)
Quarter: 2011Q1

REPORT INFORMATION
  Report Type: 
  Country: None (occurrence: None)
  Receive Date: 20110309
  Receipt Date: 20110228
  Transmission Date: 20110831
  Serious: No
  Sender: FDA-Public Use
  Company Number: US-ABBOTT-11P-163-0703592-00

PATIENT
  Age: 48 Year
  Sex: Female
  Weight: 74.91 kg

DRUGS (3)
  1. LUPRON DEPOT [Suspect]
     Indication: UTERINE LEIOMYOMA
     Dates: start: 20101101
  2. LUPRON DEPOT [Suspect]
     Indication: MENORRHAGIA
  3. LUPRON DEPOT [Suspect]
     Indication: ANAEMIA

REACTIONS (13)
  - WEIGHT INCREASED [None]
  - CONSTIPATION [None]
  - EYE DISORDER [None]
  - ABDOMINAL DISTENSION [None]
  - GASTRIC DISORDER [None]
  - NODULE [None]
  - EYE SWELLING [None]
  - ABDOMINAL PAIN UPPER [None]
  - SWELLING FACE [None]
  - TOOTH DISORDER [None]
  - HEART RATE INCREASED [None]
  - SPINAL DISORDER [None]
  - CHEST PAIN [None]
